FAERS Safety Report 7898057-9 (Version None)
Quarter: 2011Q4

REPORT INFORMATION
  Report Type: 
  Country: None (occurrence: None)
  Receive Date: 20111103
  Receipt Date: 20111024
  Transmission Date: 20120403
  Serious: Yes (Other)
  Sender: FDA-Public Use
  Company Number: 1000024133

PATIENT
  Age: 79 Year
  Sex: Male
  Weight: 54.4 kg

DRUGS (12)
  1. APO-SALVENT (SALBUTAMOL)(SALBUTAMOL) [Concomitant]
  2. ATORVASTATIN (ATORVASTATIN CALCIUM)(TABLETS)(ATORVASTATIN CALCIUM) [Concomitant]
  3. ROFLUMILAST(ROFLUMILAST) (500 MICROGRAM, TABLETS) [Suspect]
     Indication: EMPHYSEMA
     Dosage: 250 MCG (500 MCG,1 IN 2 D),ORAL
     Route: 048
     Dates: start: 20110101, end: 20110101
  4. ROFLUMILAST(ROFLUMILAST) (500 MICROGRAM, TABLETS) [Suspect]
     Indication: BRONCHITIS CHRONIC
     Dosage: 250 MCG (500 MCG,1 IN 2 D),ORAL
     Route: 048
     Dates: start: 20110101, end: 20110101
  5. SPIRIVA (TIOTROPIUM BROMIDE)(CAPSULES)(TIOTROPIUM BROMIDE) [Concomitant]
  6. TAMSULOSIN (TAMSULOSIN) ( TAMSULOSIN) [Concomitant]
  7. ROFLUMILAST (ROFLUMILAST) (500 MICROGRAM, TABLETS) [Suspect]
     Indication: BRONCHITIS CHRONIC
     Dosage: 500 MCG (500 MCG, 1 IN 1 D),ORAL
     Route: 048
     Dates: start: 20110401, end: 20110421
  8. ROFLUMILAST (ROFLUMILAST) (500 MICROGRAM, TABLETS) [Suspect]
     Indication: EMPHYSEMA
     Dosage: 500 MCG (500 MCG, 1 IN 1 D),ORAL
     Route: 048
     Dates: start: 20110401, end: 20110421
  9. FINASTERIDE(FINASTERIDE) (TABLETS) (FINASTERIDE) [Concomitant]
  10. PLAVIX (CLOPIDOGREL BISULFATE) (TABLETS) (CLOPIDOGREL BISULFATE) [Concomitant]
  11. RAMIPRIL [Concomitant]
  12. SYMBICORT(BUDESONIDE, FORMOTEROL FUMARATE)(POWDER)(BUDESONIDE, FORMOTE [Concomitant]

REACTIONS (3)
  - MYALGIA [None]
  - ECCHYMOSIS [None]
  - INSOMNIA [None]
